FAERS Safety Report 5663981-4 (Version None)
Quarter: 2008Q1

REPORT INFORMATION
  Report Type: 
  Country: None (occurrence: None)
  Receive Date: 20080314
  Receipt Date: 20080307
  Transmission Date: 20080703
  Serious: Yes (Hospitalization)
  Sender: FDA-Public Use
  Company Number: US-WYE-H02990708

PATIENT
  Age: 47 Year
  Sex: Female
  Weight: 79.5 kg

DRUGS (1)
  1. MYLOTARG [Suspect]
     Indication: ACUTE MYELOID LEUKAEMIA
     Dosage: 9.2 MG
     Route: 065
     Dates: start: 20080118, end: 20080215

REACTIONS (2)
  - NEUTROPHIL COUNT DECREASED [None]
  - PROCTALGIA [None]
